FAERS Safety Report 12312919 (Version 4)
Quarter: 2016Q3

REPORT INFORMATION
  Report Type: Spontaneous
  Country: AU (occurrence: AU)
  Receive Date: 20160428
  Receipt Date: 20160908
  Transmission Date: 20161109
  Serious: Yes (Disabling, Other)
  Sender: FDA-Public Use
  Company Number: AU-SA-2016SA079952

PATIENT
  Age: 37 Year
  Sex: Male
  Weight: 86 kg

DRUGS (8)
  1. ATORVASTATIN [Concomitant]
     Active Substance: ATORVASTATIN
     Dosage: 10 MG PM
  2. LYRICA [Concomitant]
     Active Substance: PREGABALIN
     Indication: PAIN
     Dosage: 300 MG IN AM AND 275 MG IN PM
  3. PALEXIA [Concomitant]
     Active Substance: TAPENTADOL HYDROCHLORIDE
     Indication: PAIN
  4. MOVICOL [Concomitant]
     Active Substance: POLYETHYLENE GLYCOL 3350\POTASSIUM CHLORIDE\SODIUM BICARBONATE\SODIUM CHLORIDE
     Dosage: DAILY +/- PM
  5. MAGNESIUM [Concomitant]
     Active Substance: MAGNESIUM
  6. FABRAZYME [Suspect]
     Active Substance: AGALSIDASE BETA
     Indication: FABRY^S DISEASE
     Route: 041
     Dates: start: 20151221
  7. PERINDOPRIL [Concomitant]
     Active Substance: PERINDOPRIL
     Dosage: PM
  8. COLOXYL [Concomitant]
     Active Substance: DOCUSATE SODIUM

REACTIONS (9)
  - Vertigo [Not Recovered/Not Resolved]
  - Weight increased [Unknown]
  - Body temperature increased [Not Recovered/Not Resolved]
  - Pain [Not Recovered/Not Resolved]
  - Hypertension [Unknown]
  - Neuralgia [Not Recovered/Not Resolved]
  - Asthenia [Not Recovered/Not Resolved]
  - Joint lock [Not Recovered/Not Resolved]
  - Oedema peripheral [Unknown]
